FAERS Safety Report 14013636 (Version 1)
Quarter: 2017Q3

REPORT INFORMATION
  Report Type: Report from Study
  Country: JP (occurrence: JP)
  Receive Date: 20170926
  Receipt Date: 20170926
  Transmission Date: 20171128
  Serious: Yes (Death, Other)
  Sender: FDA-Public Use
  Company Number: JP-BRISTOL-MYERS SQUIBB COMPANY-BMS-2017-028935

PATIENT
  Age: 64 Year
  Sex: Male
  Weight: 68 kg

DRUGS (8)
  1. PREDNISOLONE. [Concomitant]
     Active Substance: PREDNISOLONE
     Indication: PRODUCT USED FOR UNKNOWN INDICATION
     Dosage: 15 MG, QD
     Route: 048
     Dates: start: 20170418, end: 20170515
  2. PREDNISOLONE. [Concomitant]
     Active Substance: PREDNISOLONE
     Indication: PRODUCT USED FOR UNKNOWN INDICATION
     Dosage: 10 MG, QD
     Route: 048
     Dates: start: 20170516, end: 20170603
  3. IPILIMUMAB [Suspect]
     Active Substance: IPILIMUMAB
     Indication: PRODUCT USED FOR UNKNOWN INDICATION
     Dosage: 3 MG/KG, UNK
     Route: 065
     Dates: start: 20170509
  4. IPILIMUMAB [Suspect]
     Active Substance: IPILIMUMAB
     Indication: MALIGNANT MELANOMA
     Dosage: 3 MG/KG, Q3WK
     Route: 041
     Dates: start: 20170307
  5. IPILIMUMAB [Suspect]
     Active Substance: IPILIMUMAB
     Indication: PRODUCT USED FOR UNKNOWN INDICATION
     Dosage: 3 MG/KG, UNK
     Route: 065
     Dates: start: 20170411
  6. PREDONINE                          /00016203/ [Concomitant]
     Active Substance: PREDNISOLONE SODIUM SUCCINATE
     Indication: MALIGNANT MELANOMA
     Dosage: 40 MG, QD
     Route: 065
     Dates: start: 20170305, end: 20170310
  7. PREDNISOLONE. [Concomitant]
     Active Substance: PREDNISOLONE
     Indication: MALIGNANT MELANOMA
     Dosage: 20 MG, QD
     Route: 048
     Dates: start: 20170311, end: 20170417
  8. IPILIMUMAB [Suspect]
     Active Substance: IPILIMUMAB
     Indication: PRODUCT USED FOR UNKNOWN INDICATION
     Dosage: 3 MG/KG, UNK
     Route: 065
     Dates: start: 20170530

REACTIONS (2)
  - Malignant neoplasm progression [Fatal]
  - Lung disorder [Recovering/Resolving]

NARRATIVE: CASE EVENT DATE: 20170323
